FAERS Safety Report 9485782 (Version 1)
Quarter: 2013Q3

REPORT INFORMATION
  Report Type: Spontaneous
  Country: US (occurrence: None)
  Receive Date: 20130827
  Receipt Date: 20130827
  Transmission Date: 20140515
  Serious: No
  Sender: FDA-Public Use
  Company Number: None

PATIENT
  Age: 88 Year
  Sex: Male

DRUGS (8)
  1. EXJADE [Suspect]
     Indication: ANAEMIA
     Dosage: 2 TABS IN SUSPENSION ONCE DAILY ORAL
     Route: 048
     Dates: start: 20130627
  2. REVLIMID [Suspect]
     Dosage: 1 CAP FOR 21 DAYS THEN 7 OFF ONCE DAILY ORAL
     Route: 048
     Dates: start: 20130710
  3. ALEVE [Concomitant]
  4. ASPIRIN [Concomitant]
  5. FISH OIL [Concomitant]
  6. WELCHOL [Concomitant]
  7. LEVOTHYROXINE [Concomitant]
  8. VITAMIN D [Concomitant]

REACTIONS (2)
  - Ear pain [None]
  - Arthralgia [None]
